FAERS Safety Report 5918417-2 (Version None)
Quarter: 2008Q4

REPORT INFORMATION
  Report Type: 
  Country: None (occurrence: None)
  Receive Date: 20081014
  Receipt Date: 20081014
  Transmission Date: 20090506
  Serious: No
  Sender: FDA-Public Use
  Company Number: None

PATIENT
  Sex: Male
  Weight: 102.9665 kg

DRUGS (9)
  1. HUMIRA [Suspect]
     Indication: PSORIATIC ARTHROPATHY
     Dosage: 40MG SUBCUT 057
     Route: 058
     Dates: start: 20070701, end: 20071201
  2. VIT D [Concomitant]
  3. LOVASTATIN [Concomitant]
  4. ATENOLOL [Concomitant]
  5. CELEBREX [Concomitant]
  6. GABAPENTIN [Concomitant]
  7. OXYCODONE AND ACETAMINOPHEN [Concomitant]
  8. ASPIRIN [Concomitant]
  9. BACLOFEN [Concomitant]

REACTIONS (2)
  - ABDOMINAL PAIN [None]
  - PANCREATIC ENZYMES INCREASED [None]
